FAERS Safety Report 14450659 (Version 2)
Quarter: 2018Q1

REPORT INFORMATION
  Report Type: Spontaneous
  Country: US (occurrence: US)
  Receive Date: 20180129
  Receipt Date: 20180315
  Transmission Date: 20180509
  Serious: Yes (Death, Hospitalization, Other)
  Sender: FDA-Public Use
  Company Number: US-BRISTOL-MYERS SQUIBB COMPANY-BMS-2018-007433

PATIENT
  Age: 53 Year
  Sex: Female

DRUGS (2)
  1. OPDIVO [Suspect]
     Active Substance: NIVOLUMAB
     Indication: METASTATIC MALIGNANT MELANOMA
     Dosage: 90 MG, UNK
     Route: 042
     Dates: start: 20170829, end: 20171012
  2. YERVOY [Suspect]
     Active Substance: IPILIMUMAB
     Indication: METASTATIC MALIGNANT MELANOMA
     Dosage: 270 MG, UNK
     Route: 042
     Dates: start: 20170829, end: 20171012

REACTIONS (8)
  - Abdominal pain [Unknown]
  - Malignant neoplasm progression [Unknown]
  - Hospitalisation [Unknown]
  - Colitis [Unknown]
  - Death [Fatal]
  - Pulmonary embolism [Unknown]
  - Cognitive disorder [Unknown]
  - Diarrhoea [Unknown]

NARRATIVE: CASE EVENT DATE: 20170927
